FAERS Safety Report 5467799-7 (Version None)
Quarter: 2007Q3

REPORT INFORMATION
  Report Type: 
  Country: None (occurrence: None)
  Receive Date: 20070814
  Receipt Date: 20070718
  Transmission Date: 20080115
  Serious: No
  Sender: FDA-Public Use
  Company Number: 200711472US

PATIENT
  Age: 39 Year
  Sex: Male
  Weight: 79.379 kg

DRUGS (4)
  1. APIDRA [Suspect]
     Indication: TYPE 1 DIABETES MELLITUS
     Dosage: AC
     Dates: start: 20061201
  2. LANTUS [Suspect]
     Dosage: 40 U HS
     Dates: start: 20070101
  3. OPTICLIK [Suspect]
     Dates: start: 20061201
  4. ESCITALOPRAM OXALATE         (LEXAPRO) [Concomitant]

REACTIONS (9)
  - BACK PAIN [None]
  - BLOOD GLUCOSE INCREASED [None]
  - DYSPEPSIA [None]
  - HEADACHE [None]
  - HYPOGLYCAEMIA [None]
  - MALAISE [None]
  - NAUSEA [None]
  - PAIN [None]
  - WRONG DRUG ADMINISTERED [None]
